FAERS Safety Report 6581086-5 (Version None)
Quarter: 2010Q1

REPORT INFORMATION
  Report Type: 
  Country: None (occurrence: None)
  Receive Date: 20100215
  Receipt Date: 20100203
  Transmission Date: 20100710
  Serious: Yes (Other)
  Sender: FDA-Public Use
  Company Number: PHHY2010GB07024

PATIENT
  Sex: Female

DRUGS (2)
  1. CLOZARIL [Suspect]
     Indication: SCHIZOPHRENIA
     Dosage: UNK
     Dates: start: 20040206, end: 20041217
  2. CLOZARIL [Suspect]
     Dosage: UNK
     Dates: end: 20090101

REACTIONS (3)
  - CARDIAC DISORDER [None]
  - DEEP VEIN THROMBOSIS [None]
  - JOINT SWELLING [None]
